FAERS Safety Report 6222969-5 (Version None)
Quarter: 2009Q2

REPORT INFORMATION
  Report Type: 
  Country: None (occurrence: None)
  Receive Date: 20090611
  Receipt Date: 20090527
  Transmission Date: 20091009
  Serious: Yes (Hospitalization)
  Sender: FDA-Public Use
  Company Number: DE-PFIZER INC-2009218814

PATIENT
  Age: 36 Year

DRUGS (18)
  1. DAUNORUBICIN HCL [Suspect]
     Indication: ACUTE MYELOID LEUKAEMIA
     Dosage: UNK
     Route: 048
     Dates: start: 20090324
  2. CYTARABINE [Suspect]
     Indication: ACUTE MYELOID LEUKAEMIA
     Dosage: UNK
     Dates: start: 20090324
  3. SOBELIN [Suspect]
     Indication: PNEUMONIA PRIMARY ATYPICAL
     Dosage: UNK
     Dates: start: 20090407, end: 20090407
  4. BLINDED THERAPY [Suspect]
     Indication: ACUTE MYELOID LEUKAEMIA
     Dosage: UNK
     Route: 048
     Dates: start: 20090331
  5. FORTECORTIN [Concomitant]
     Dosage: UNK
  6. PANTOZOL [Concomitant]
  7. CIPROBAY [Concomitant]
  8. DIHYDROCODEINE [Concomitant]
  9. DIAZEPAM [Concomitant]
  10. POSACONAZOLE [Concomitant]
  11. RULID [Concomitant]
  12. ALLOPURINOL [Concomitant]
  13. HEPARIN [Concomitant]
  14. PIPRIL [Concomitant]
  15. COMBACTAM [Concomitant]
  16. VANCOMYCIN [Concomitant]
  17. ACICLOVIR [Concomitant]
  18. CEFCIDAL [Concomitant]

REACTIONS (2)
  - ANAPHYLACTIC REACTION [None]
  - PNEUMONIA PRIMARY ATYPICAL [None]
